FAERS Safety Report 14621039 (Version 14)
Quarter: 2023Q2

REPORT INFORMATION
  Report Type: Other
  Country: CA (occurrence: None)
  Receive Date: 20180309
  Receipt Date: 20230620
  Transmission Date: 20230721
  Serious: Yes (Other)
  Sender: FDA-Public Use
  Company Number: CA-ROCHE-2083666

PATIENT
  Age: 51 Year
  Sex: Female

DRUGS (16)
  1. OCREVUS [Suspect]
     Active Substance: OCRELIZUMAB
     Indication: Relapsing-remitting multiple sclerosis
     Dosage: 300 MG AT DAY 0 AND 14, THEN 600 MG EVERY 6 MONTH
     Route: 042
     Dates: start: 20180220
  2. OCREVUS [Suspect]
     Active Substance: OCRELIZUMAB
     Dosage: 600 MG EVERY 6 MONTH
     Route: 042
  3. GLICLAZIDE [Concomitant]
     Active Substance: GLICLAZIDE
     Indication: Diabetes mellitus
     Dosage: 2 TABLETS OF THE 60 MG WITH BREAKFAST
     Route: 048
     Dates: start: 2008
  4. JANUVIA [Concomitant]
     Active Substance: SITAGLIPTIN PHOSPHATE
     Indication: Diabetes mellitus
     Route: 048
     Dates: start: 2014
  5. LAMOTRIGINE [Concomitant]
     Active Substance: LAMOTRIGINE
     Indication: Trigeminal neuralgia
     Route: 048
     Dates: start: 2014
  6. FLAXSEED [Concomitant]
     Active Substance: FLAX SEED
     Route: 048
     Dates: start: 2015
  7. COENZYME Q10 [Concomitant]
     Active Substance: DIETARY SUPPLEMENT\UBIDECARENONE
     Route: 048
     Dates: start: 2015
  8. CRANBERRY [Concomitant]
     Active Substance: CRANBERRY
     Route: 048
     Dates: start: 2015
  9. BIOTIN [Concomitant]
     Active Substance: BIOTIN
     Route: 048
     Dates: start: 2015
  10. VITAMIN B COMPLEX [Concomitant]
     Active Substance: CYANOCOBALAMIN\DEXPANTHENOL\NIACINAMIDE\PYRIDOXINE HYDROCHLORIDE\RIBOFLAVIN 5^-PHOSPHATE SODIUM\THIA
     Route: 048
     Dates: start: 2015
  11. FOLIC ACID [Concomitant]
     Active Substance: FOLIC ACID
     Route: 048
     Dates: start: 2015
  12. VITAMIN C [Concomitant]
     Active Substance: ASCORBIC ACID
     Route: 048
     Dates: start: 2015
  13. MAGNESIUM [Concomitant]
     Active Substance: MAGNESIUM
     Route: 048
  14. CALCIUM [Concomitant]
     Active Substance: CALCIUM
     Route: 048
     Dates: start: 2015
  15. CHROMIUM [Concomitant]
     Active Substance: CHROMIC CHLORIDE\CHROMIUM
     Route: 048
     Dates: start: 2015
  16. OZEMPIC [Concomitant]
     Active Substance: SEMAGLUTIDE

REACTIONS (11)
  - Trigeminal neuralgia [Recovered/Resolved]
  - Pain [Not Recovered/Not Resolved]
  - Pain in jaw [Not Recovered/Not Resolved]
  - Confusional state [Unknown]
  - Lethargy [Recovered/Resolved]
  - Urinary tract infection [Unknown]
  - Intervertebral disc protrusion [Not Recovered/Not Resolved]
  - Blood glucose increased [Recovering/Resolving]
  - Hypertension [Not Recovered/Not Resolved]
  - Blood cholesterol increased [Not Recovered/Not Resolved]
  - Diabetes mellitus inadequate control [Recovered/Resolved]

NARRATIVE: CASE EVENT DATE: 20180220
